FAERS Safety Report 5145647-2 (Version None)
Quarter: 2006Q4

REPORT INFORMATION
  Report Type: 
  Country: None (occurrence: None)
  Receive Date: 20061031
  Receipt Date: 20061020
  Transmission Date: 20070319
  Serious: Yes (Other)
  Sender: FDA-Public Use
  Company Number: US-2006-031248

PATIENT
  Age: 42 Year
  Sex: Female
  Weight: 46 kg

DRUGS (1)
  1. MIRENA [Suspect]
     Indication: CONTRACEPTION
     Dosage: 20 UG/DAY, CONT, INTRA-UTERINE
     Route: 015
     Dates: start: 20060816

REACTIONS (2)
  - MENORRHAGIA [None]
  - SYSTEMIC LUPUS ERYTHEMATOSUS [None]
